FAERS Safety Report 24668092 (Version 5)
Quarter: 2024Q4

REPORT INFORMATION
  Report Type: Spontaneous
  Country: US (occurrence: US)
  Receive Date: 20241127
  Receipt Date: 20241213
  Transmission Date: 20250114
  Serious: Yes (Hospitalization, Other)
  Sender: ROCHE
  Company Number: US-ROCHE-10000140576

PATIENT

DRUGS (2)
  1. ACTEMRA [Suspect]
     Active Substance: TOCILIZUMAB
     Indication: Scleroderma
     Route: 065
  2. ACTEMRA [Suspect]
     Active Substance: TOCILIZUMAB
     Indication: Interstitial lung disease

REACTIONS (8)
  - Scleroderma renal crisis [Unknown]
  - Pulmonary oedema [Unknown]
  - Condition aggravated [Unknown]
  - Disability [Unknown]
  - Off label use [Unknown]
  - Hypotension [Unknown]
  - Blood pressure increased [Unknown]
  - Speech disorder [Unknown]

NARRATIVE: CASE EVENT DATE: 20240701
